FAERS Safety Report 20500009 (Version 1)
Quarter: 2022Q1

REPORT INFORMATION
  Report Type: Spontaneous
  Country: US (occurrence: US)
  Receive Date: 20220222
  Receipt Date: 20220222
  Transmission Date: 20220423
  Serious: No
  Sender: FDA-Public Use
  Company Number: US-UCBSA-2021048490

PATIENT
  Age: 78 Year
  Sex: Female

DRUGS (6)
  1. LEVETIRACETAM [Suspect]
     Active Substance: LEVETIRACETAM
     Indication: Tremor
     Dosage: UNKNOWN DOSE
  2. LEVETIRACETAM [Suspect]
     Active Substance: LEVETIRACETAM
     Indication: Off label use
  3. CLONAZEPAM [Concomitant]
     Active Substance: CLONAZEPAM
     Indication: Tremor
     Dosage: UNKNOWN DOSE
  4. GABAPENTIN [Concomitant]
     Active Substance: GABAPENTIN
     Indication: Tremor
     Dosage: UNKNOWN DOSE
  5. LEVODOPA [Concomitant]
     Active Substance: LEVODOPA
     Indication: Tremor
     Dosage: UNKNOWN DOSE
  6. PRIMIDONE [Concomitant]
     Active Substance: PRIMIDONE
     Indication: Tremor
     Dosage: UNKNOWN DOSE

REACTIONS (2)
  - Drug ineffective for unapproved indication [Unknown]
  - Off label use [Unknown]
